FAERS Safety Report 7301052-1 (Version None)
Quarter: 2011Q1

REPORT INFORMATION
  Report Type: 
  Country: None (occurrence: None)
  Receive Date: 20110218
  Receipt Date: 20101221
  Transmission Date: 20110831
  Serious: Yes (Other)
  Sender: FDA-Public Use
  Company Number: DE-ASTELLAS-2010EU006958

PATIENT
  Age: 41 Year
  Sex: Male

DRUGS (6)
  1. METHYLPREDNISOLONE [Suspect]
     Indication: TRANSPLANT
     Dosage: 250 MG, UID/QD
     Route: 042
  2. METHYLPREDNISOLONE [Suspect]
     Dosage: 10 MG, UID/QD
     Route: 048
  3. METHYLPREDNISOLONE [Suspect]
     Dosage: 250 MG, UID/QD
     Route: 042
  4. TACROLIMUS SYSTEMIC [Suspect]
     Indication: TRANSPLANT
     Dosage: 5 MG, BID
     Route: 048
  5. MYCOPHENOLATE MEFETIL [Suspect]
     Indication: TRANSPLANT
     Dosage: 1 G, BID
     Route: 048
  6. ANTI-THYMOCYTE GLOBULIN NOS [Concomitant]
     Indication: IMMUNOSUPPRESSION
     Dosage: 4 MG/KG, UNKNOWN/D
     Route: 042

REACTIONS (2)
  - IMPLANT SITE INFECTION [None]
  - OFF LABEL USE [None]
